FAERS Safety Report 7519291-3 (Version None)
Quarter: 2011Q2

REPORT INFORMATION
  Report Type: 
  Country: None (occurrence: None)
  Receive Date: 20110602
  Receipt Date: 20110527
  Transmission Date: 20111010
  Serious: Yes (Other)
  Sender: FDA-Public Use
  Company Number: A0928333A

PATIENT
  Age: 64 Year
  Sex: Female

DRUGS (1)
  1. ALLI [Suspect]
     Indication: PRODUCT USED FOR UNKNOWN INDICATION
     Route: 048

REACTIONS (3)
  - LIVER FUNCTION TEST ABNORMAL [None]
  - NAUSEA [None]
  - BACK PAIN [None]
